FAERS Safety Report 6060660-9 (Version None)
Quarter: 2009Q1

REPORT INFORMATION
  Report Type: 
  Country: None (occurrence: None)
  Receive Date: 20090130
  Receipt Date: 20090130
  Transmission Date: 20090719
  Serious: Yes (Death, Disabling)
  Sender: FDA-Public Use
  Company Number: None

PATIENT
  Age: 64 Year
  Sex: Female
  Weight: 92.9874 kg

DRUGS (2)
  1. ABILIFY [Suspect]
     Indication: BIPOLAR DISORDER
     Dosage: 15 70 MG 25 QPM QHS 1236 TO 1-3 08
     Dates: end: 20080103
  2. IMIPRAMINE [Suspect]
     Dosage: 3 A DAY 8/23/07 - LIP SMACK
     Dates: start: 20070823

REACTIONS (4)
  - IRRITABILITY [None]
  - MUSCULOSKELETAL STIFFNESS [None]
  - ORAL PAIN [None]
  - TARDIVE DYSKINESIA [None]
